FAERS Safety Report 8451259 (Version 4)
Quarter: 2016Q2

REPORT INFORMATION
  Report Type: Report from Study
  Country: CA (occurrence: CA)
  Receive Date: 20120309
  Receipt Date: 20160511
  Transmission Date: 20160815
  Serious: Yes (Other)
  Sender: FDA-Public Use
  Company Number: PHHY2011CA89593

PATIENT
  Age: 45 Year
  Sex: Female

DRUGS (3)
  1. GILENYA [Suspect]
     Active Substance: FINGOLIMOD HYDROCHLORIDE
     Dosage: 0.5 MG, QD
     Route: 048
     Dates: start: 20120215, end: 201602
  2. LYRICA [Concomitant]
     Active Substance: PREGABALIN
     Indication: NEURALGIA
     Dosage: 25 MG, QHS
     Route: 065
  3. GILENYA [Suspect]
     Active Substance: FINGOLIMOD HYDROCHLORIDE
     Indication: RELAPSING-REMITTING MULTIPLE SCLEROSIS
     Dosage: 0.5 MG QD
     Route: 048
     Dates: start: 20110916

REACTIONS (9)
  - Oropharyngeal pain [Unknown]
  - Vomiting [Unknown]
  - Headache [Unknown]
  - Optic neuritis [Unknown]
  - Eye pain [Recovered/Resolved]
  - Chills [Unknown]
  - Vision blurred [Not Recovered/Not Resolved]
  - Photophobia [Unknown]
  - Pyrexia [Unknown]

NARRATIVE: CASE EVENT DATE: 201110
